FAERS Safety Report 5268846-8 (Version None)
Quarter: 2007Q1

REPORT INFORMATION
  Report Type: 
  Country: None (occurrence: None)
  Receive Date: 20070313
  Receipt Date: 20070228
  Transmission Date: 20070707
  Serious: Yes (Death, Hospitalization)
  Sender: FDA-Public Use
  Company Number: 2006SP008648

PATIENT
  Age: 73 Year
  Sex: Female
  Weight: 58.5 kg

DRUGS (5)
  1. TEMODAL [Suspect]
     Indication: GLIOBLASTOMA MULTIFORME
     Dosage: 230 MG; QD; PO
     Route: 048
     Dates: start: 20061116, end: 20061120
  2. DEXAMETHASONE TAB [Suspect]
     Indication: DRUG USE FOR UNKNOWN INDICATION
     Dosage: 16 MG
  3. RADIATION THERAPY (THERAPEUTIC RADIOPHARMACEUTICALS) [Suspect]
     Indication: GLIOBLASTOMA MULTIFORME
     Dates: end: 20060801
  4. VALPROIC ACID [Concomitant]
  5. DEXAMETHASONE [Concomitant]

REACTIONS (10)
  - ACUTE RESPIRATORY DISTRESS SYNDROME [None]
  - BACTERAEMIA [None]
  - BRONCHOPULMONARY ASPERGILLOSIS [None]
  - FALL [None]
  - NEUTROPENIA [None]
  - PELVIC FRACTURE [None]
  - PLATELET COUNT DECREASED [None]
  - PNEUMONIA STREPTOCOCCAL [None]
  - PULMONARY OEDEMA [None]
  - SEPTIC SHOCK [None]
